FAERS Safety Report 8075534-1 (Version None)
Quarter: 2012Q1

REPORT INFORMATION
  Report Type: 
  Country: None (occurrence: None)
  Receive Date: 20120127
  Receipt Date: 20120123
  Transmission Date: 20120608
  Serious: Yes (Other)
  Sender: FDA-Public Use
  Company Number: US-PFIZER INC-2012019267

PATIENT

DRUGS (4)
  1. TRAMADOL [Concomitant]
     Dosage: UNK
  2. LEXAPRO [Concomitant]
     Dosage: UNK
  3. CITALOPRAM [Concomitant]
     Dosage: UNK
  4. DETROL LA [Suspect]
     Dosage: 4 MG, 1X/DAY
     Route: 048

REACTIONS (1)
  - LOWER LIMB FRACTURE [None]
